FAERS Safety Report 5591187-6 (Version None)
Quarter: 2008Q1

REPORT INFORMATION
  Report Type: 
  Country: None (occurrence: None)
  Receive Date: 20080115
  Receipt Date: 20080108
  Transmission Date: 20080703
  Serious: Yes (Other)
  Sender: FDA-Public Use
  Company Number: JP-JNJFOC-20080102291

PATIENT
  Age: 8 Month
  Sex: Female

DRUGS (6)
  1. TOPIRAMATE [Suspect]
     Indication: EPILEPSY
     Route: 048
  2. PHENOBARBITAL TAB [Interacting]
     Route: 048
  3. PHENOBARBITAL TAB [Interacting]
     Indication: EPILEPSY
     Route: 048
  4. UNASYN [Concomitant]
  5. MEROPEN [Concomitant]
  6. AMOXICILLIN [Concomitant]

REACTIONS (5)
  - ABDOMINAL DISTENSION [None]
  - ANTICONVULSANT DRUG LEVEL BELOW THERAPEUTIC [None]
  - DIARRHOEA [None]
  - DRUG INTERACTION [None]
  - INTESTINAL PERFORATION [None]
